FAERS Safety Report 12328513 (Version 1)
Quarter: 2016Q2

REPORT INFORMATION
  Report Type: Spontaneous
  Country: US (occurrence: US)
  Receive Date: 20160503
  Receipt Date: 20160503
  Transmission Date: 20160815
  Serious: No
  Sender: FDA-Public Use
  Company Number: US-BEH-2015048824

PATIENT
  Age: 55 Year
  Sex: Female
  Weight: 98 kg

DRUGS (52)
  1. SYNTHROID [Concomitant]
     Active Substance: LEVOTHYROXINE SODIUM
  2. CRESTOR [Concomitant]
     Active Substance: ROSUVASTATIN CALCIUM
  3. MICARDIS [Concomitant]
     Active Substance: TELMISARTAN
  4. AMARYL [Concomitant]
     Active Substance: GLIMEPIRIDE
  5. ELOCON [Concomitant]
     Active Substance: MOMETASONE FUROATE
  6. LACTAID [Concomitant]
     Active Substance: LACTASE
  7. SINGULAIR [Concomitant]
     Active Substance: MONTELUKAST SODIUM
  8. FOLIC ACID. [Concomitant]
     Active Substance: FOLIC ACID
  9. NYSTATIN CREAM [Concomitant]
     Active Substance: NYSTATIN
  10. FERROUS FUMARATE [Concomitant]
     Active Substance: FERROUS FUMARATE
  11. CUBICIN [Concomitant]
     Active Substance: DAPTOMYCIN
  12. PREDNISOLONE. [Concomitant]
     Active Substance: PREDNISOLONE
  13. HIZENTRA [Suspect]
     Active Substance: HUMAN IMMUNOGLOBULIN G
     Route: 058
  14. LYRICA [Concomitant]
     Active Substance: PREGABALIN
  15. LOPRESSOR [Concomitant]
     Active Substance: METOPROLOL TARTRATE
  16. NEXIUM [Concomitant]
     Active Substance: ESOMEPRAZOLE MAGNESIUM
  17. HYDROXYZINE HCL [Concomitant]
     Active Substance: HYDROXYZINE HYDROCHLORIDE
  18. METHOTREXATE [Concomitant]
     Active Substance: METHOTREXATE
  19. ASCORBIC ACID (VIT C), INCL COMBINATIONS [Concomitant]
  20. HIZENTRA [Suspect]
     Active Substance: HUMAN IMMUNOGLOBULIN G
     Indication: IMMUNODEFICIENCY COMMON VARIABLE
     Route: 058
  21. HIZENTRA [Suspect]
     Active Substance: HUMAN IMMUNOGLOBULIN G
     Route: 058
  22. EPIPEN [Concomitant]
     Active Substance: EPINEPHRINE
  23. BUDESONIDE. [Concomitant]
     Active Substance: BUDESONIDE
  24. CALCIUM+D PLUS MINERALS [Concomitant]
  25. VITAMIN B12 [Concomitant]
     Active Substance: CYANOCOBALAMIN
  26. NEUPRO [Concomitant]
     Active Substance: ROTIGOTINE
  27. KLONOPIN [Concomitant]
     Active Substance: CLONAZEPAM
  28. LIDOCAINE. [Concomitant]
     Active Substance: LIDOCAINE
  29. BENZONATATE. [Concomitant]
     Active Substance: BENZONATATE
  30. MUCINEX ER [Concomitant]
  31. LANTUS [Concomitant]
     Active Substance: INSULIN GLARGINE
  32. PROAIR HFA [Concomitant]
     Active Substance: ALBUTEROL SULFATE
  33. DIPHENHYDRAMINE. [Concomitant]
     Active Substance: DIPHENHYDRAMINE
  34. LASIX [Concomitant]
     Active Substance: FUROSEMIDE
  35. TRILIPIX DR [Concomitant]
  36. POTASSIUM CL ER [Concomitant]
     Active Substance: POTASSIUM CHLORIDE
  37. ZANAFLEX [Concomitant]
     Active Substance: TIZANIDINE HYDROCHLORIDE
  38. REGLAN [Concomitant]
     Active Substance: METOCLOPRAMIDE HYDROCHLORIDE
  39. REQUIP [Concomitant]
     Active Substance: ROPINIROLE HYDROCHLORIDE
  40. ENABLEX [Concomitant]
     Active Substance: DARIFENACIN HYDROBROMIDE
  41. ZINC [Concomitant]
     Active Substance: ZINC\ZINC CHLORIDE
  42. MULTIVITAMIN [Concomitant]
     Active Substance: VITAMINS
  43. ALL OTHER NON-THERAPEUTIC PRODUCTS [Suspect]
     Active Substance: UNSPECIFIED INGREDIENT
  44. ACETAMINOPHEN. [Concomitant]
     Active Substance: ACETAMINOPHEN
  45. NOVOLOG [Concomitant]
     Active Substance: INSULIN ASPART
  46. FLONASE [Concomitant]
     Active Substance: FLUTICASONE PROPIONATE
  47. NEURONTIN [Concomitant]
     Active Substance: GABAPENTIN
  48. LIDOCAINE/PRILOCAINE [Concomitant]
  49. COUMADIN [Concomitant]
     Active Substance: WARFARIN SODIUM
  50. DOXEPIN [Concomitant]
     Active Substance: DOXEPIN
  51. BACTROBAN [Concomitant]
     Active Substance: MUPIROCIN\MUPIROCIN CALCIUM
  52. CLARINEX [Concomitant]
     Active Substance: DESLORATADINE

REACTIONS (1)
  - Urticaria [Unknown]

NARRATIVE: CASE EVENT DATE: 20150206
